FAERS Safety Report 16409592 (Version 1)
Quarter: 2019Q2

REPORT INFORMATION
  Report Type: Spontaneous
  Country: JP (occurrence: JP)
  Receive Date: 20190610
  Receipt Date: 20190610
  Transmission Date: 20190711
  Serious: Yes (Hospitalization)
  Sender: FDA-Public Use
  Company Number: JP-PFIZER INC-2019169453

PATIENT
  Age: 65 Year
  Sex: Male

DRUGS (4)
  1. GENOTROPIN [Suspect]
     Active Substance: SOMATROPIN
     Dosage: 0.3 ML, ALTERNATE DAY
     Route: 058
     Dates: start: 20190416, end: 20190422
  2. GENOTROPIN [Suspect]
     Active Substance: SOMATROPIN
     Dosage: 0.3 ML, DAILY
     Route: 058
     Dates: start: 20190411, end: 20190414
  3. GENOTROPIN [Suspect]
     Active Substance: SOMATROPIN
     Dosage: 0.3 MG, ALTERNATE DAY
     Route: 058
     Dates: start: 2000
  4. GENOTROPIN [Suspect]
     Active Substance: SOMATROPIN
     Dosage: 0.3 ML, EVERY TWO DAYS
     Route: 058
     Dates: start: 20190425, end: 20190501

REACTIONS (2)
  - Wrong technique in product usage process [Unknown]
  - Disuse syndrome [Unknown]

NARRATIVE: CASE EVENT DATE: 20190417
